FAERS Safety Report 4421430-8 (Version None)
Quarter: 2004Q3

REPORT INFORMATION
  Report Type: 
  Country: None (occurrence: None)
  Receive Date: 20040709
  Receipt Date: 20040504
  Transmission Date: 20050211
  Serious: No
  Sender: FDA-Public Use
  Company Number: 2004S1000096

PATIENT
  Age: 72 Year
  Sex: Female
  Weight: 84.8 kg

DRUGS (17)
  1. CUBICIN [Suspect]
     Indication: GLYCOPEPTIDE ANTIBIOTIC RESISTANT ENTEROCOCCAL INFECTION
     Dosage: 480 MG; Q24H; IV
     Route: 042
     Dates: start: 20040426, end: 20040430
  2. CUBICIN [Suspect]
     Indication: STAPHYLOCOCCAL INFECTION
     Dosage: 480 MG; Q24H; IV
     Route: 042
     Dates: start: 20040426, end: 20040430
  3. VITAMIN C [Concomitant]
  4. CELEBREX [Concomitant]
  5. COLACE [Concomitant]
  6. FERROUS SULFATE TAB [Concomitant]
  7. DIFLUCAN [Concomitant]
  8. NIZORAL CREAM [Concomitant]
  9. LOPRESSOR [Concomitant]
  10. PROTONIX [Concomitant]
  11. ZOLOFT [Concomitant]
  12. THJERGRAN [Concomitant]
  13. PRINIVIL [Concomitant]
  14. LEVAQUIN [Concomitant]
  15. DURAGESIC [Concomitant]
  16. PAMELOR [Concomitant]
  17. METAMUCIL-2 [Concomitant]

REACTIONS (2)
  - MYALGIA [None]
  - SKIN LESION [None]
